FAERS Safety Report 6145494-9 (Version None)
Quarter: 2009Q2

REPORT INFORMATION
  Report Type: 
  Country: None (occurrence: None)
  Receive Date: 20090402
  Receipt Date: 20090325
  Transmission Date: 20091009
  Serious: Yes (Other)
  Sender: FDA-Public Use
  Company Number: CHPA2009US07881

PATIENT
  Age: 82 Year
  Sex: Female

DRUGS (1)
  1. TRANSDERM SCOP [Suspect]
     Indication: PROPHYLAXIS OF NAUSEA AND VOMITING
     Dosage: 1.5 MG, Q72H, TRANSDERMAL
     Route: 062

REACTIONS (4)
  - AGGRESSION [None]
  - DELIRIUM [None]
  - DISORIENTATION [None]
  - PARANOIA [None]
